FAERS Safety Report 24894396 (Version 1)
Quarter: 2025Q1

REPORT INFORMATION
  Report Type: Other
  Country: GB (occurrence: GB)
  Receive Date: 20250128
  Receipt Date: 20250128
  Transmission Date: 20250408
  Serious: Yes (Other)
  Sender: GLENMARK
  Company Number: GB-MHRA-TPP15799100C8199136YC1737282399017

PATIENT

DRUGS (16)
  1. GABAPENTIN [Suspect]
     Active Substance: GABAPENTIN
     Indication: Product used for unknown indication
     Dosage: 100 MILLIGRAM, TID (IN EVERY 8 HOURS, TAKE ONE 3 TIMES/DAY)
     Route: 065
     Dates: start: 20250115
  2. Mepilex border comfort lite [Concomitant]
     Indication: Product used for unknown indication
     Route: 065
     Dates: start: 20240430
  3. SILICON [Concomitant]
     Active Substance: SILICON
     Indication: Product used for unknown indication
     Route: 065
     Dates: start: 20250106
  4. Libra [Concomitant]
     Indication: Product used for unknown indication
     Route: 065
     Dates: start: 20250108
  5. AMOXICILLIN\CLAVULANATE POTASSIUM [Concomitant]
     Active Substance: AMOXICILLIN\CLAVULANATE POTASSIUM
     Indication: Product used for unknown indication
     Dosage: 1 DOSAGE FORM, TID ( IN EVERY 8 HOURS,TAKE ONE 3 TIMES/DAY)
     Route: 065
     Dates: start: 20250113
  6. EPIMAX EXCETRA [Concomitant]
     Indication: Ill-defined disorder
     Route: 065
     Dates: start: 20250115
  7. FLUPENTIXOL [Concomitant]
     Active Substance: FLUPENTIXOL
     Indication: Product used for unknown indication
     Dosage: 1 DOSAGE FORM, OD (ONE A DAY)
     Route: 065
     Dates: start: 20240430
  8. EZETIMIBE [Concomitant]
     Active Substance: EZETIMIBE
     Indication: Product used for unknown indication
     Dosage: 1 DOSAGE FORM, QD (TAKE ONE DAILY)
     Route: 065
     Dates: start: 20240430
  9. FLAMINAL HYDRO [Concomitant]
     Indication: Product used for unknown indication
     Route: 065
     Dates: start: 20240430
  10. PROLIA [Concomitant]
     Active Substance: DENOSUMAB
     Indication: Product used for unknown indication
     Route: 065
     Dates: start: 20240430
  11. RANOLAZINE [Concomitant]
     Active Substance: RANOLAZINE
     Indication: Product used for unknown indication
     Dosage: 1 DOSAGE FORM, BID (TAKE ONE TWICE DAILY)
     Route: 065
     Dates: start: 20240430
  12. OMEPRAZOLE [Concomitant]
     Active Substance: OMEPRAZOLE
     Indication: Product used for unknown indication
     Dosage: 1 DOSAGE FORM, QD (TAKE ONE DAILY)
     Route: 065
     Dates: start: 20240430
  13. AMLODIPINE [Concomitant]
     Active Substance: AMLODIPINE BESYLATE
     Indication: Product used for unknown indication
     Dosage: 1 DOSAGE FORM, QD (TAKE ONE DAILY)
     Route: 065
     Dates: start: 20240430
  14. ASPIRIN [Concomitant]
     Active Substance: ASPIRIN
     Indication: Product used for unknown indication
     Dosage: 1 DOSAGE FORM, QD (TAKE ONE DAILY.)
     Route: 065
     Dates: start: 20240430
  15. ACETAMINOPHEN [Concomitant]
     Active Substance: ACETAMINOPHEN
     Indication: Product used for unknown indication
     Dosage: QID (TAKE ONE TO TWO TABLETS FOUR TIMES A DAY WHEN R..)
     Route: 065
     Dates: start: 20240430
  16. POLYETHYLENE GLYCOL 3350\POTASSIUM CHLORIDE\SODIUM BICARBONATE\SODIUM [Concomitant]
     Active Substance: POLYETHYLENE GLYCOL 3350\POTASSIUM CHLORIDE\SODIUM BICARBONATE\SODIUM CHLORIDE
     Indication: Product used for unknown indication
     Dosage: BID (TAKE ONE SACHET TWICE DAILY.)
     Route: 065
     Dates: start: 20240813

REACTIONS (2)
  - Confusional state [Recovered/Resolved]
  - Vomiting [Recovered/Resolved]
